FAERS Safety Report 5395887-2 (Version None)
Quarter: 2007Q3

REPORT INFORMATION
  Report Type: 
  Country: None (occurrence: None)
  Receive Date: 20070724
  Receipt Date: 20070712
  Transmission Date: 20080115
  Serious: Yes (Other)
  Sender: FDA-Public Use
  Company Number: US-PFIZER INC-2007042011

PATIENT
  Sex: Male
  Weight: 82.727 kg

DRUGS (11)
  1. CHANTIX [Suspect]
     Indication: SMOKING CESSATION THERAPY
     Route: 048
  2. INSULIN [Concomitant]
     Dosage: TEXT:74 UNITS QAM AND 18 UNITS QPM
  3. ZANTAC 150 [Concomitant]
     Indication: DYSPEPSIA
  4. METFORMIN HCL [Concomitant]
  5. ALLEGRA [Concomitant]
  6. CELEXA [Concomitant]
  7. DEPAKOTE [Concomitant]
  8. ENALAPRIL MALEATE [Concomitant]
  9. ALL OTHER THERAPEUTIC PRODUCTS [Concomitant]
  10. ASCORBIC ACID [Concomitant]
  11. VITAMIN B COMPLEX CAP [Concomitant]

REACTIONS (2)
  - ERUCTATION [None]
  - PSYCHOTIC DISORDER [None]
